FAERS Safety Report 16737573 (Version 4)
Quarter: 2020Q1

REPORT INFORMATION
  Report Type: Spontaneous
  Country: US (occurrence: US)
  Receive Date: 20190823
  Receipt Date: 20200109
  Transmission Date: 20200409
  Serious: Yes (Hospitalization)
  Sender: FDA-Public Use
  Company Number: US-PFIZER INC-2019362187

PATIENT
  Age: 78 Year
  Sex: Female
  Weight: 80 kg

DRUGS (13)
  1. CELEXA [Concomitant]
     Active Substance: CITALOPRAM HYDROBROMIDE
     Dosage: UNK
     Dates: start: 20190117
  2. ERGOCALCIFEROL. [Concomitant]
     Active Substance: ERGOCALCIFEROL
     Dosage: 1.25 MG, WEEKLY
     Route: 048
     Dates: start: 20181121
  3. AROMASIN [Suspect]
     Active Substance: EXEMESTANE
     Indication: BREAST CANCER FEMALE
     Dosage: 25 MG, DAILY
     Route: 048
     Dates: start: 201904, end: 20190731
  4. XARELTO [Concomitant]
     Active Substance: RIVAROXABAN
     Dosage: 20 MG, 1X/DAY
     Route: 048
     Dates: start: 20190815
  5. ZOFRAN [Concomitant]
     Active Substance: ONDANSETRON HYDROCHLORIDE
     Indication: VOMITING
  6. IRON FERROUS POLYSACCHARIDE COMPLEX [Concomitant]
     Dosage: 150 MG, 1X/DAY
     Route: 048
     Dates: start: 20181207
  7. AROMASIN [Suspect]
     Active Substance: EXEMESTANE
     Dosage: 25 MG, 1X/DAY
     Dates: start: 20190820
  8. ZOFRAN [Concomitant]
     Active Substance: ONDANSETRON HYDROCHLORIDE
     Indication: NAUSEA
     Dosage: UNK (1-2 TAB(S) EVERY 8 HOURS, AS NEEDED)
     Route: 048
  9. MAGNESIUM OXIDE. [Concomitant]
     Active Substance: MAGNESIUM OXIDE
     Dosage: 400 MG, 1X/DAY
     Route: 048
     Dates: start: 20181207
  10. OMEPRAZOLE. [Concomitant]
     Active Substance: OMEPRAZOLE
     Dosage: 40 MG, 2X/DAY
     Route: 048
  11. PROCHLORPERAZINE. [Concomitant]
     Active Substance: PROCHLORPERAZINE
     Indication: VOMITING
  12. METFORMIN [Concomitant]
     Active Substance: METFORMIN HYDROCHLORIDE
     Dosage: 500 MG, 2X/DAY
     Route: 048
  13. PROCHLORPERAZINE. [Concomitant]
     Active Substance: PROCHLORPERAZINE
     Indication: NAUSEA
     Dosage: 10 MG, UNK (EVERY 6 HOURS, AS NEEDED)
     Route: 048
     Dates: start: 20190116

REACTIONS (10)
  - Thrombosis [Unknown]
  - Alanine aminotransferase increased [Unknown]
  - Mean cell haemoglobin concentration decreased [Unknown]
  - Constipation [Recovered/Resolved]
  - Aspartate aminotransferase increased [Unknown]
  - Red cell distribution width increased [Unknown]
  - Diarrhoea [Recovered/Resolved]
  - Blood pressure decreased [Unknown]
  - Iron binding capacity total increased [Unknown]
  - Transferrin saturation decreased [Unknown]

NARRATIVE: CASE EVENT DATE: 20190725
